FAERS Safety Report 5954709-9 (Version None)
Quarter: 2008Q4

REPORT INFORMATION
  Report Type: 
  Country: None (occurrence: None)
  Receive Date: 20081117
  Receipt Date: 20081110
  Transmission Date: 20090506
  Serious: Yes (Hospitalization, Disabling, Other)
  Sender: FDA-Public Use
  Company Number: PHHY2008BR27817

PATIENT
  Age: 68 Year
  Sex: Male
  Weight: 72 kg

DRUGS (3)
  1. VOLTAREN [Suspect]
     Indication: MUSCLE SPASMS
     Dosage: 1 AMPOULE EVERY 3 DAYS
  2. CAPTOPRIL [Concomitant]
  3. BENERVA [Concomitant]

REACTIONS (5)
  - BLINDNESS [None]
  - GENERALISED OEDEMA [None]
  - MUSCLE SPASMS [None]
  - VISION BLURRED [None]
  - WALKING AID USER [None]
